FAERS Safety Report 7731889-6 (Version None)
Quarter: 2011Q3

REPORT INFORMATION
  Report Type: 
  Country: None (occurrence: None)
  Receive Date: 20110906
  Receipt Date: 20110901
  Transmission Date: 20111222
  Serious: Yes (Other)
  Sender: FDA-Public Use
  Company Number: JP-PFIZER INC-2011184325

PATIENT
  Age: 70 Year
  Sex: Female

DRUGS (2)
  1. ARTANE [Suspect]
     Dosage: 2 MG, 2X/DAY
     Route: 048
  2. LAMICTAL [Suspect]
     Dosage: UNK

REACTIONS (2)
  - OEDEMA PERIPHERAL [None]
  - FACE OEDEMA [None]
